FAERS Safety Report 5419321-9 (Version None)
Quarter: 2007Q3

REPORT INFORMATION
  Report Type: 
  Country: None (occurrence: None)
  Receive Date: 20070820
  Receipt Date: 20070808
  Transmission Date: 20080115
  Serious: Yes (Life-Threatening)
  Sender: FDA-Public Use
  Company Number: FR-JNJFOC-20070803241

PATIENT
  Sex: Male

DRUGS (10)
  1. TRAMADOL HCL [Suspect]
     Indication: ABDOMINAL PAIN
     Route: 048
  2. IMOVANE [Suspect]
     Indication: DRUG USE FOR UNKNOWN INDICATION
     Dosage: 1DF
     Route: 048
  3. OFLOCET [Suspect]
     Indication: URINARY TRACT INFECTION
     Route: 048
  4. ANAFRANIL [Suspect]
     Indication: DRUG USE FOR UNKNOWN INDICATION
     Route: 048
  5. STABLON [Suspect]
     Indication: DRUG USE FOR UNKNOWN INDICATION
     Route: 048
  6. LEXOMIL [Suspect]
     Indication: DRUG USE FOR UNKNOWN INDICATION
     Route: 048
  7. LANSOPRAZOLE [Concomitant]
  8. TROSPIUM CHLORIDE [Concomitant]
  9. VALSARTAN [Concomitant]
  10. AMOXICILLIN [Concomitant]

REACTIONS (5)
  - APNOEA [None]
  - CARDIAC FAILURE [None]
  - COMA [None]
  - CREATININE RENAL CLEARANCE DECREASED [None]
  - DEHYDRATION [None]
